FAERS Safety Report 5104979-4 (Version None)
Quarter: 2006Q3

REPORT INFORMATION
  Report Type: 
  Country: None (occurrence: None)
  Receive Date: 20060911
  Receipt Date: 20060829
  Transmission Date: 20061208
  Serious: Yes (Death)
  Sender: FDA-Public Use
  Company Number: US200608006678

PATIENT
  Age: 55 Year
  Sex: Female

DRUGS (5)
  1. ZYPREXA [Suspect]
     Dosage: 5 MG
  2. CYTOMEL [Concomitant]
  3. PREDNISONE TAB [Concomitant]
  4. FUROSEMIDE [Concomitant]
  5. PROPRANOLOL [Concomitant]

REACTIONS (2)
  - CARDIAC DISORDER [None]
  - FOREIGN BODY TRAUMA [None]
